FAERS Safety Report 19959437 (Version 1)
Quarter: 2021Q4

REPORT INFORMATION
  Report Type: Spontaneous
  Country: US (occurrence: US)
  Receive Date: 20211015
  Receipt Date: 20211015
  Transmission Date: 20220303
  Serious: Yes (Other)
  Sender: FDA-Public Use
  Company Number: None

PATIENT
  Age: 70 Year
  Sex: Female
  Weight: 74.7 kg

DRUGS (1)
  1. HUMIRA [Suspect]
     Active Substance: ADALIMUMAB
     Indication: Crohn^s disease
     Dosage: ?          OTHER FREQUENCY:EVERY 2 WEEKS;
     Route: 058
     Dates: start: 20210812, end: 20210917

REACTIONS (4)
  - Pain [None]
  - Therapy cessation [None]
  - Arthralgia [None]
  - Myalgia [None]

NARRATIVE: CASE EVENT DATE: 20210820
